FAERS Safety Report 22530189 (Version 1)
Quarter: 2023Q2

REPORT INFORMATION
  Report Type: Spontaneous
  Country: KR (occurrence: KR)
  Receive Date: 20230607
  Receipt Date: 20230607
  Transmission Date: 20230722
  Serious: Yes (Other)
  Sender: FDA-Public Use
  Company Number: KR-MYLANLABS-2023M1058311

PATIENT
  Age: 73 Year
  Sex: Male

DRUGS (3)
  1. CELEBREX [Suspect]
     Active Substance: CELECOXIB
     Indication: Deformity
     Dosage: 200 MILLIGRAM, QD
     Route: 048
     Dates: start: 20190424, end: 20190424
  2. DULOXETINE HYDROCHLORIDE [Suspect]
     Active Substance: DULOXETINE HYDROCHLORIDE
     Indication: Deformity
     Dosage: 30 MILLIGRAM, QD
     Route: 048
     Dates: start: 20190424, end: 20190424
  3. REBAMIPIDE [Suspect]
     Active Substance: REBAMIPIDE
     Indication: Deformity
     Dosage: 1 DOSAGE FORM, QD
     Route: 048
     Dates: start: 20190424, end: 20190424

REACTIONS (3)
  - Cachexia [Recovered/Resolved]
  - Abdominal discomfort [Recovered/Resolved]
  - Decreased appetite [Recovered/Resolved]

NARRATIVE: CASE EVENT DATE: 20190424
